FAERS Safety Report 5619039-3 (Version None)
Quarter: 2008Q1

REPORT INFORMATION
  Report Type: 
  Country: None (occurrence: None)
  Receive Date: 20080207
  Receipt Date: 20080204
  Transmission Date: 20080703
  Serious: Yes (Other)
  Sender: FDA-Public Use
  Company Number: US-ALLERGAN-0801330US

PATIENT
  Sex: Male

DRUGS (1)
  1. BOTOX COSMETIC [Suspect]
     Indication: SKIN WRINKLING
     Dosage: UNK, SINGLE
     Route: 030
     Dates: start: 20080130, end: 20080130

REACTIONS (4)
  - DIZZINESS [None]
  - DYSPNOEA [None]
  - EYELID PTOSIS [None]
  - PHARYNGEAL OEDEMA [None]
